FAERS Safety Report 9508967 (Version 1)
Quarter: 2013Q3

REPORT INFORMATION
  Report Type: Spontaneous
  Country: US (occurrence: US)
  Receive Date: 20130909
  Receipt Date: 20130909
  Transmission Date: 20140515
  Serious: No
  Sender: FDA-Public Use
  Company Number: US-BRISTOL-MYERS SQUIBB COMPANY-19064633

PATIENT
  Age: 79 Year
  Sex: Female
  Weight: 46.26 kg

DRUGS (6)
  1. ABILIFY [Suspect]
     Indication: DEPRESSION
  2. BETAPACE [Concomitant]
  3. TRAZODONE HCL [Concomitant]
  4. ZOLOFT [Concomitant]
     Indication: DEPRESSION
  5. ZOCOR [Concomitant]
     Indication: BLOOD CHOLESTEROL
  6. KLONOPIN [Concomitant]

REACTIONS (2)
  - Chapped lips [Unknown]
  - Rash [Unknown]
